FAERS Safety Report 7578916-7 (Version None)
Quarter: 2011Q2

REPORT INFORMATION
  Report Type: 
  Country: None (occurrence: None)
  Receive Date: 20110628
  Receipt Date: 20110624
  Transmission Date: 20111010
  Serious: Yes (Other)
  Sender: FDA-Public Use
  Company Number: BR-PFIZER INC-2011118271

PATIENT
  Age: 36 Year
  Sex: Female
  Weight: 49.5 kg

DRUGS (4)
  1. PROFIMAX [Concomitant]
     Indication: PANIC DISORDER
  2. VARENICLINE TARTRATE [Suspect]
     Dosage: UNK
     Route: 048
     Dates: start: 20110101
  3. VARENICLINE TARTRATE [Suspect]
     Indication: TOBACCO ABUSE
     Dosage: 0.5 MG, 1X/DAY
     Route: 048
     Dates: start: 20110326, end: 20110101
  4. PROFIMAX [Concomitant]
     Indication: DEPRESSION
     Dosage: 20 MG, 1X/DAY
     Dates: start: 20010101

REACTIONS (1)
  - VISUAL IMPAIRMENT [None]
